FAERS Safety Report 18551885 (Version 1)
Quarter: 2020Q4

REPORT INFORMATION
  Report Type: Spontaneous
  Country: US (occurrence: US)
  Receive Date: 20201126
  Receipt Date: 20201126
  Transmission Date: 20210114
  Serious: Yes (Other)
  Sender: FDA-Public Use
  Company Number: NVSC2020US243201

PATIENT
  Age: 3 Week
  Sex: Male

DRUGS (1)
  1. INFUVITE PEDIATRIC [Suspect]
     Active Substance: .ALPHA.-TOCOPHEROL ACETATE\ASCORBIC ACID\BIOTIN\CHOLECALCIFEROL\CYANOCOBALAMIN\DEXPANTHENOL\FOLIC ACID\NIACINAMIDE\PHYTONADIONE\PYRIDOXINE\RIBOFLAVIN\THIAMINE\VITAMIN A
     Indication: PRODUCT USED FOR UNKNOWN INDICATION
     Dosage: UNK
     Route: 065

REACTIONS (2)
  - Volvulus [Unknown]
  - Anaphylactic reaction [Unknown]
